FAERS Safety Report 11580702 (Version 1)
Quarter: 2015Q3

REPORT INFORMATION
  Report Type: Report from Study
  Country: CA (occurrence: CA)
  Receive Date: 20150930
  Receipt Date: 20150930
  Transmission Date: 20151125
  Serious: Yes (Hospitalization, Other)
  Sender: FDA-Public Use
  Company Number: CA-AMGEN-CANSL2015099010

PATIENT
  Age: 52 Year
  Sex: Female

DRUGS (8)
  1. SYMBICORT [Concomitant]
     Active Substance: BUDESONIDE\FORMOTEROL FUMARATE DIHYDRATE
  2. ROFACT                             /00146901/ [Concomitant]
     Dosage: 300 MG, UNK
  3. VITAMIN D                          /00107901/ [Concomitant]
     Active Substance: ERGOCALCIFEROL
     Dosage: 400 IU, UNK
  4. PROLIA [Suspect]
     Active Substance: DENOSUMAB
     Indication: OSTEOPOROSIS POSTMENOPAUSAL
     Dosage: 60 MG, UNK
     Route: 065
     Dates: start: 20101214
  5. DEXILANT [Concomitant]
     Active Substance: DEXLANSOPRAZOLE
  6. NASONEX [Concomitant]
     Active Substance: MOMETASONE FUROATE
  7. TRAZODONE                          /00447702/ [Concomitant]
     Active Substance: TRAZODONE HYDROCHLORIDE
  8. CALCIUM [Concomitant]
     Active Substance: CALCIUM
     Dosage: 500 MG, UNK

REACTIONS (11)
  - Tendon rupture [Unknown]
  - Knee operation [Unknown]
  - Walking aid user [Unknown]
  - Mastectomy [Unknown]
  - Bone disorder [Not Recovered/Not Resolved]
  - Adverse event [Unknown]
  - Clostridium difficile infection [Unknown]
  - Prosthesis implantation [Unknown]
  - Patient-device incompatibility [Unknown]
  - Fall [Unknown]
  - Biopsy [Unknown]

NARRATIVE: CASE EVENT DATE: 20150901
